FAERS Safety Report 9934316 (Version 2)
Quarter: 2014Q1

REPORT INFORMATION
  Report Type: Spontaneous
  Country: US (occurrence: US)
  Receive Date: 20140228
  Receipt Date: 20140228
  Transmission Date: 20141002
  Serious: Yes (Hospitalization)
  Sender: FDA-Public Use
  Company Number: US-US-EMD SERONO, INC.-231512K06USA

PATIENT
  Age: 38 Year
  Sex: Female

DRUGS (2)
  1. REBIF [Suspect]
     Indication: MULTIPLE SCLEROSIS
     Route: 058
     Dates: start: 20051219, end: 20060125
  2. REBIF [Suspect]
     Route: 058
     Dates: start: 20090922

REACTIONS (2)
  - Multiple sclerosis relapse [Unknown]
  - Headache [Not Recovered/Not Resolved]
